FAERS Safety Report 8733360 (Version 3)
Quarter: 2013Q2

REPORT INFORMATION
  Report Type: Spontaneous
  Country: US (occurrence: US)
  Receive Date: 20120821
  Receipt Date: 20130423
  Transmission Date: 20140414
  Serious: Yes (Death, Hospitalization)
  Sender: FDA-Public Use
  Company Number: US-PFIZER INC-2012200862

PATIENT
  Age: 60 Year
  Sex: Male

DRUGS (3)
  1. INLYTA [Suspect]
     Indication: RENAL CANCER
     Dosage: 5 MG, 2X/DAY
     Dates: start: 20120525
  2. INLYTA [Suspect]
     Dosage: 1 MG, 3 TABLETS TWICE DAILY
     Dates: start: 20120723
  3. INLYTA [Suspect]
     Dosage: 1MG, 3 TABLETS, 2X/DAY
     Dates: start: 20120531

REACTIONS (4)
  - Death [Fatal]
  - Haematuria [Unknown]
  - Haemoptysis [Unknown]
  - Cough [Unknown]
